FAERS Safety Report 7865720-5 (Version None)
Quarter: 2011Q4

REPORT INFORMATION
  Report Type: 
  Country: None (occurrence: None)
  Receive Date: 20111028
  Receipt Date: 20110214
  Transmission Date: 20120403
  Serious: No
  Sender: FDA-Public Use
  Company Number: US-GLAXOSMITHKLINE-A0913426A

PATIENT
  Age: 58 Year
  Sex: Male

DRUGS (10)
  1. METHADONE HCL [Concomitant]
  2. NORCO [Concomitant]
  3. PREDNISONE [Concomitant]
  4. ADVAIR DISKUS 100/50 [Suspect]
     Indication: CHRONIC OBSTRUCTIVE PULMONARY DISEASE
     Dosage: 1PUFF TWICE PER DAY
     Route: 055
     Dates: start: 20080101
  5. CARVEDILOL [Concomitant]
  6. ALBUTEROL [Concomitant]
  7. SOMA [Concomitant]
  8. BENICAR [Concomitant]
  9. CLONIDINE [Concomitant]
  10. DOXYCYCLINE [Concomitant]

REACTIONS (6)
  - DYSPHAGIA [None]
  - PHARYNGEAL MASS [None]
  - OROPHARYNGEAL PAIN [None]
  - WHEEZING [None]
  - LIPOMA [None]
  - DRUG INEFFECTIVE [None]
